FAERS Safety Report 4950507-3 (Version None)
Quarter: 2006Q1

REPORT INFORMATION
  Report Type: 
  Country: None (occurrence: None)
  Receive Date: 20060322
  Receipt Date: 20060314
  Transmission Date: 20060701
  Serious: Yes (Hospitalization)
  Sender: FDA-Public Use
  Company Number: GB-GLAXOSMITHKLINE-B0415867A

PATIENT
  Age: 87 Year
  Sex: Female
  Weight: 51.3 kg

DRUGS (3)
  1. CEFUROXIM [Suspect]
     Indication: PROPHYLAXIS
     Dosage: 1.5G UNKNOWN
     Route: 042
     Dates: start: 20051218, end: 20051219
  2. ADCAL D3 [Concomitant]
     Indication: PROPHYLAXIS
     Dosage: 1U UNKNOWN
     Route: 048
     Dates: start: 20060105
  3. ENOXAPARIN SODIUM [Concomitant]
     Indication: THROMBOSIS PROPHYLAXIS
     Dosage: 20MG PER DAY
     Route: 058
     Dates: start: 20051214, end: 20060112

REACTIONS (1)
  - JAUNDICE CHOLESTATIC [None]
